FAERS Safety Report 4944158-4 (Version None)
Quarter: 2006Q1

REPORT INFORMATION
  Report Type: 
  Country: None (occurrence: None)
  Receive Date: 20060315
  Receipt Date: 20060220
  Transmission Date: 20060701
  Serious: Yes (Hospitalization)
  Sender: FDA-Public Use
  Company Number: 2006AP00918

PATIENT
  Age: 26327 Day
  Sex: Female
  Weight: 44 kg

DRUGS (5)
  1. ARIMIDEX [Suspect]
     Indication: BREAST CANCER
     Route: 048
     Dates: start: 20041028, end: 20050908
  2. XELODA [Suspect]
     Indication: BREAST CANCER
     Route: 048
     Dates: start: 20040520, end: 20041125
  3. XELODA [Suspect]
     Route: 048
     Dates: start: 20050203, end: 20051215
  4. ENDOXAN [Suspect]
     Indication: BREAST CANCER
     Route: 048
     Dates: start: 20040819, end: 20041124
  5. FARESTON [Suspect]
     Indication: BREAST CANCER
     Route: 048
     Dates: start: 20050908, end: 20051215

REACTIONS (1)
  - INTERSTITIAL LUNG DISEASE [None]
